FAERS Safety Report 14778621 (Version 1)
Quarter: 2018Q2

REPORT INFORMATION
  Report Type: Spontaneous
  Country: US (occurrence: US)
  Receive Date: 20180419
  Receipt Date: 20180419
  Transmission Date: 20180711
  Serious: Yes (Other)
  Sender: FDA-Public Use
  Company Number: US-VISTAPHARM, INC.-VER201804-000576

PATIENT
  Sex: Male

DRUGS (2)
  1. METHADONE [Suspect]
     Active Substance: METHADONE HYDROCHLORIDE
     Indication: PAIN MANAGEMENT
     Dosage: LIQUID
     Route: 048
     Dates: end: 20180317
  2. METHADONE [Suspect]
     Active Substance: METHADONE HYDROCHLORIDE
     Dosage: LIQUID

REACTIONS (28)
  - Depression [Not Recovered/Not Resolved]
  - Sleep disorder [Unknown]
  - Migraine [Recovered/Resolved]
  - Bruxism [Recovered/Resolved]
  - Nausea [Recovered/Resolved]
  - Overdose [Unknown]
  - Trismus [Recovered/Resolved]
  - Abdominal pain upper [Unknown]
  - Bedridden [Unknown]
  - Amnesia [Unknown]
  - Erectile dysfunction [Recovered/Resolved]
  - Mental impairment [Not Recovered/Not Resolved]
  - Anxiety [Recovered/Resolved]
  - Headache [Recovered/Resolved]
  - Muscular weakness [Unknown]
  - Restlessness [Not Recovered/Not Resolved]
  - Withdrawal syndrome [Unknown]
  - Chest pain [Not Recovered/Not Resolved]
  - Diarrhoea [Recovered/Resolved]
  - Dyspnoea [Unknown]
  - Muscle spasms [Not Recovered/Not Resolved]
  - Myalgia [Unknown]
  - Weight decreased [Recovered/Resolved]
  - Movement disorder [Unknown]
  - Malaise [Recovered/Resolved]
  - Asthenia [Not Recovered/Not Resolved]
  - Formication [Not Recovered/Not Resolved]
  - Foetal heart rate increased [Recovered/Resolved]
